FAERS Safety Report 22385917 (Version 1)
Quarter: 2023Q2

REPORT INFORMATION
  Report Type: Spontaneous
  Country: NL (occurrence: NL)
  Receive Date: 20230530
  Receipt Date: 20230530
  Transmission Date: 20230722
  Serious: Yes (Life-Threatening)
  Sender: FDA-Public Use
  Company Number: None

PATIENT
  Sex: Male
  Weight: 88 kg

DRUGS (16)
  1. OXALIPLATIN [Suspect]
     Active Substance: OXALIPLATIN
     Indication: Colon cancer metastatic
     Dosage: 175G
     Route: 065
     Dates: start: 20230509, end: 20230509
  2. PANTOPRAZOLE [Concomitant]
     Active Substance: PANTOPRAZOLE
     Indication: Product used for unknown indication
     Dosage: GASTRO-RESISTANT TABLET, 40 MILLIGRAMS
  3. METOPROLOL TABLET MGA 50MG (SUCCINATE) / Brand name not specified [Concomitant]
     Indication: Product used for unknown indication
     Dosage: TABLET WITH CONTROLLED RELEASE, 50 MG (MILLIGRAMS)
  4. OXAZEPAM [Concomitant]
     Active Substance: OXAZEPAM
     Indication: Product used for unknown indication
     Dosage: TABLET, 10 MG (MILLIGRAM)
  5. FENTANYL TABLET BUCCAL 100UG / Brand name not specified [Concomitant]
     Indication: Product used for unknown indication
     Dosage: TABLET, 100 ?G (MICROGRAM)
  6. TEMAZEPAM [Concomitant]
     Active Substance: TEMAZEPAM
     Indication: Product used for unknown indication
     Dosage: CAPSULE, 10 MG (MILLIGRAM)
  7. CARBASALAATCALCIUM POWDER 100MG / Brand name not specified [Concomitant]
     Indication: Product used for unknown indication
     Dosage: BAG (POWDER), 100 MILLIGRAMS
  8. NIFEDIPINE TABLET MGA 20MG / Brand name not specified [Concomitant]
     Indication: Product used for unknown indication
     Dosage: TABLET WITH CONTROLLED RELEASE, 20 MILLIGRAMS
  9. METOCLOPRAMIDE [Concomitant]
     Active Substance: METOCLOPRAMIDE
     Indication: Product used for unknown indication
     Dosage: TABLET, 10 MG (MILLIGRAM)
  10. ISOSORBIDEMONONITRAAT CAPSULE MGA  25MG / Brand name not specified [Concomitant]
     Indication: Product used for unknown indication
     Dosage: TABLET WITH CONTROLLED RELEASE, 25 MILLIGRAMS
  11. DEXAMETHASONE TABLET 4MG / Brand name not specified [Concomitant]
     Indication: Product used for unknown indication
     Dosage: TABLET, 4 MG (MILLIGRAM)
  12. ondansetron melting tablet 8MG / Brand name not specified [Concomitant]
     Indication: Product used for unknown indication
     Dosage: MELTING TABLET, 8 MILLIGRAMS
  13. folinic acid, solution for injection 10 mg/ml / Brand name not specifi [Concomitant]
     Indication: Product used for unknown indication
     Dosage: SOLUTION FOR INJECTION, 10 MG/ML
  14. BEVACIZUMAB INFUSION/ Brand name not specified [Concomitant]
     Indication: Product used for unknown indication
     Dosage: INFUSION, 1MG/MG
  15. NITROGLYCERINE SPRAY SUBLINGUAL. 0,4MG/DO / Brand name not specified [Concomitant]
     Indication: Product used for unknown indication
     Dosage: SPRAY, 0.4 MG/DOSE
  16. fluorouracil injection/infusion  / Brand name not specified [Concomitant]
     Indication: Product used for unknown indication
     Dosage: INJECTION/INFUSION, 1MG/MG

REACTIONS (2)
  - Arteriospasm coronary [Recovered/Resolved]
  - Acute myocardial infarction [Recovered/Resolved]
